FAERS Safety Report 6616342-5 (Version None)
Quarter: 2010Q1

REPORT INFORMATION
  Report Type: 
  Country: None (occurrence: None)
  Receive Date: 20100305
  Receipt Date: 20100226
  Transmission Date: 20100710
  Serious: Yes (Life-Threatening, Hospitalization)
  Sender: FDA-Public Use
  Company Number: US-JNJFOC-20091006588

PATIENT
  Age: 69 Year
  Sex: Female

DRUGS (4)
  1. DURAGESIC-100 [Suspect]
     Indication: BACK PAIN
     Route: 062
  2. FENTANYL CITRATE [Suspect]
     Indication: DRUG USE FOR UNKNOWN INDICATION
     Route: 062
  3. FENTANYL CITRATE [Suspect]
     Route: 062
  4. RESTORIL [Concomitant]

REACTIONS (5)
  - AGGRESSION [None]
  - AMNESIA [None]
  - COMA [None]
  - MENTAL STATUS CHANGES [None]
  - UNRESPONSIVE TO STIMULI [None]
